FAERS Safety Report 16630507 (Version 1)
Quarter: 2019Q3

REPORT INFORMATION
  Report Type: Spontaneous
  Country: IT (occurrence: IT)
  Receive Date: 20190725
  Receipt Date: 20190725
  Transmission Date: 20191004
  Serious: Yes (Hospitalization)
  Sender: FDA-Public Use
  Company Number: IT-TEVA-2019-IT-1082491

PATIENT
  Age: 75 Year
  Sex: Female

DRUGS (6)
  1. ANTRA [Concomitant]
     Active Substance: OMEPRAZOLE
  2. LINEZOLID KABI 2 MG/ML SOLUZIONE PER INFUSIONE [Suspect]
     Active Substance: LINEZOLID
     Indication: BACTERIAL INFECTION
     Route: 042
     Dates: start: 20190627
  3. FERLIXIT 62.5 [Concomitant]
     Active Substance: SODIUM FERRIC GLUCONATE COMPLEX
     Dosage: 1 DOSAGE FORMS DAILY;
  4. ROCEFIN 2 G POLVERE PER SOLUZIONE PER INFUSIONE [Suspect]
     Active Substance: CEFTRIAXONE SODIUM
     Indication: MENINGITIS
     Dosage: 2 GRAM DAILY;
     Route: 042
     Dates: start: 20190627
  5. LEVETIRACETAM. [Suspect]
     Active Substance: LEVETIRACETAM
     Indication: EPILEPSY
     Dosage: 500 MILLIGRAM DAILY;
     Dates: start: 20190627
  6. CLEXANE [Concomitant]
     Active Substance: ENOXAPARIN SODIUM
     Dosage: 4000 KU DAILY;
     Route: 058

REACTIONS (1)
  - Gamma-glutamyltransferase increased [Not Recovered/Not Resolved]

NARRATIVE: CASE EVENT DATE: 20190707
